FAERS Safety Report 15067350 (Version 1)
Quarter: 2018Q2

REPORT INFORMATION
  Report Type: Spontaneous
  Country: US (occurrence: US)
  Receive Date: 20180626
  Receipt Date: 20180626
  Transmission Date: 20180711
  Serious: No
  Sender: FDA-Public Use
  Company Number: US-DSJP-DSU-2017-129249

PATIENT
  Age: 88 Year
  Sex: Male
  Weight: 81.63 kg

DRUGS (5)
  1. WELCHOL [Suspect]
     Active Substance: COLESEVELAM HYDROCHLORIDE
     Indication: DIARRHOEA
     Dosage: 1250 MG, TID
     Route: 048
     Dates: start: 201704
  2. COZAAR [Concomitant]
     Active Substance: LOSARTAN POTASSIUM
     Indication: HYPERTENSION
     Dosage: UNK
     Route: 048
  3. PLAVIX [Concomitant]
     Active Substance: CLOPIDOGREL BISULFATE
     Indication: CEREBROVASCULAR ACCIDENT
     Dosage: UNK
     Route: 048
  4. POTASSIUM [Concomitant]
     Active Substance: POTASSIUM
     Indication: BLOOD POTASSIUM DECREASED
     Dosage: UNK
     Route: 048
  5. LOTREL                             /01388302/ [Concomitant]
     Active Substance: LOTEPREDNOL ETABONATE
     Indication: HYPERTENSION
     Dosage: 5/20 MG, QD
     Route: 048

REACTIONS (1)
  - Off label use [Not Recovered/Not Resolved]

NARRATIVE: CASE EVENT DATE: 201704
